FAERS Safety Report 6727503-9 (Version None)
Quarter: 2010Q2

REPORT INFORMATION
  Report Type: 
  Country: None (occurrence: None)
  Receive Date: 20100517
  Receipt Date: 20100506
  Transmission Date: 20101027
  Serious: Yes (Hospitalization)
  Sender: FDA-Public Use
  Company Number: FR-BRISTOL-MYERS SQUIBB COMPANY-15106925

PATIENT
  Age: 13 Year
  Sex: Male

DRUGS (2)
  1. CISPLATIN [Suspect]
  2. VINCRISTINE [Suspect]

REACTIONS (4)
  - DECREASED APPETITE [None]
  - DEHYDRATION [None]
  - HYPONATRAEMIA [None]
  - WEIGHT DECREASED [None]
